FAERS Safety Report 15132116 (Version 2)
Quarter: 2018Q3

REPORT INFORMATION
  Report Type: Spontaneous
  Country: US (occurrence: US)
  Receive Date: 20180711
  Receipt Date: 20180719
  Transmission Date: 20181010
  Serious: No
  Sender: FDA-Public Use
  Company Number: US-GALDERMA-US18002071

PATIENT
  Age: 23 Year
  Sex: Female

DRUGS (3)
  1. DIFFERIN GEL [Suspect]
     Active Substance: ADAPALENE
     Indication: ACNE
     Dosage: 0.1%
     Route: 061
     Dates: start: 20180131, end: 20180206
  2. ELTA MD SUNCREEN [Concomitant]
     Indication: PRODUCT USED FOR UNKNOWN INDICATION
  3. AYUR?MEDIC CALMING CLEANSER, TONER, CALMING CREAM [Concomitant]

REACTIONS (5)
  - Pruritus [Not Recovered/Not Resolved]
  - Inappropriate schedule of drug administration [Recovered/Resolved]
  - Rash erythematous [Not Recovered/Not Resolved]
  - Urticaria [Unknown]
  - Underdose [Recovered/Resolved]

NARRATIVE: CASE EVENT DATE: 20180131
